FAERS Safety Report 10554754 (Version 1)
Quarter: 2014Q4

REPORT INFORMATION
  Report Type: Spontaneous
  Country: US (occurrence: US)
  Receive Date: 20141030
  Receipt Date: 20141030
  Transmission Date: 20150529
  Serious: No
  Sender: FDA-Public Use
  Company Number: US-BAYER-2014-155796

PATIENT
  Age: 69 Year
  Sex: Female
  Weight: 80.73 kg

DRUGS (3)
  1. ALEVE [Suspect]
     Active Substance: NAPROXEN SODIUM
     Indication: MYALGIA
     Dosage: 2 DF, PRN
     Route: 048
  2. ALEVE [Suspect]
     Active Substance: NAPROXEN SODIUM
     Indication: MYALGIA
     Dosage: 2 DF, UNK
     Route: 048
     Dates: start: 20141018, end: 20141018
  3. ALEVE PM [Suspect]
     Active Substance: DIPHENHYDRAMINE HYDROCHLORIDE\NAPROXEN SODIUM
     Indication: MYALGIA
     Dosage: 2 DF, ONCE
     Route: 048
     Dates: start: 20141018, end: 20141018

REACTIONS (4)
  - Headache [Recovered/Resolved]
  - Extra dose administered [Unknown]
  - Hangover [Recovered/Resolved]
  - Somnolence [Recovered/Resolved]

NARRATIVE: CASE EVENT DATE: 20141018
